FAERS Safety Report 9781719 (Version 1)
Quarter: 2013Q4

REPORT INFORMATION
  Report Type: Spontaneous
  Country: GB (occurrence: GB)
  Receive Date: 20131224
  Receipt Date: 20131224
  Transmission Date: 20140711
  Serious: Yes (Life-Threatening, Hospitalization)
  Sender: FDA-Public Use
  Company Number: GB-ACTAVIS-2013-23229

PATIENT
  Age: 72 Year
  Sex: Female

DRUGS (8)
  1. IBUPROFEN (UNKNOWN) [Suspect]
     Indication: OSTEOARTHRITIS
     Dosage: 400 MG, TID
     Route: 048
     Dates: end: 20131115
  2. OMEPRAZOLE [Concomitant]
     Indication: PRODUCT USED FOR UNKNOWN INDICATION
     Dosage: 20 MG, DAILY; ONE IN THE MORNING.
     Route: 065
  3. TIOTROPIUM [Concomitant]
     Indication: PRODUCT USED FOR UNKNOWN INDICATION
     Dosage: 18 ?G, DAILY; ONE IN THE MORNING.
     Route: 065
  4. SERETIDE [Concomitant]
     Indication: PRODUCT USED FOR UNKNOWN INDICATION
     Dosage: 1 DF, BID
     Route: 065
  5. FOLIC ACID [Concomitant]
     Indication: PRODUCT USED FOR UNKNOWN INDICATION
     Dosage: 5 MG, DAILY; ONE IN THE MORNING.
     Route: 065
  6. CITALOPRAM [Concomitant]
     Indication: PRODUCT USED FOR UNKNOWN INDICATION
     Dosage: 10 MG, DAILY; ONE IN THE MORNING.
     Route: 065
  7. CALCICHEW D3 [Concomitant]
     Indication: PRODUCT USED FOR UNKNOWN INDICATION
     Dosage: 1 DF, BID
     Route: 065
  8. AMITRIPTYLINE [Concomitant]
     Indication: PRODUCT USED FOR UNKNOWN INDICATION
     Dosage: 10 MG, QHS
     Route: 065

REACTIONS (2)
  - Anaemia [Unknown]
  - Dyspnoea exertional [Unknown]
